FAERS Safety Report 17818264 (Version 1)
Quarter: 2020Q2

REPORT INFORMATION
  Report Type: Spontaneous
  Country: US (occurrence: US)
  Receive Date: 20200522
  Receipt Date: 20200522
  Transmission Date: 20200714
  Serious: Yes (Hospitalization, Other)
  Sender: FDA-Public Use
  Company Number: US-NAPPMUNDI-USA-2020-0153388

PATIENT
  Sex: Male

DRUGS (4)
  1. METHADONE [Suspect]
     Active Substance: METHADONE HYDROCHLORIDE
     Indication: PRODUCT USED FOR UNKNOWN INDICATION
     Dosage: UNK
     Route: 048
  2. HEROIN [Suspect]
     Active Substance: DIAMORPHINE
     Indication: PAIN
     Dosage: UNK
     Route: 065
  3. FENTANYL                           /00174602/ [Suspect]
     Active Substance: FENTANYL
     Indication: PAIN
     Dosage: UNK
     Route: 062
  4. OXYCONTIN [Suspect]
     Active Substance: OXYCODONE HYDROCHLORIDE
     Indication: PAIN
     Dosage: UNK
     Route: 048

REACTIONS (5)
  - Substance abuse [Unknown]
  - Schizoaffective disorder [Not Recovered/Not Resolved]
  - Drug abuse [Unknown]
  - Illusion [Unknown]
  - Drug dependence [Unknown]

NARRATIVE: CASE EVENT DATE: 2019
